FAERS Safety Report 15021032 (Version 2)
Quarter: 2018Q2

REPORT INFORMATION
  Report Type: Spontaneous
  Country: CY (occurrence: CY)
  Receive Date: 20180618
  Receipt Date: 20180618
  Transmission Date: 20180711
  Serious: Yes (Other)
  Sender: FDA-Public Use
  Company Number: PHHY2018CY019011

PATIENT
  Age: 58 Year
  Sex: Female

DRUGS (2)
  1. PREDNISOLONE. [Suspect]
     Active Substance: PREDNISOLONE
     Indication: COLITIS ULCERATIVE
     Dosage: 5 MG, QD
     Route: 065
  2. AZATHIOPRINE. [Suspect]
     Active Substance: AZATHIOPRINE
     Indication: COLITIS ULCERATIVE
     Dosage: 100 MG, QD
     Route: 065

REACTIONS (5)
  - Brain abscess [Recovering/Resolving]
  - Meningoencephalitis bacterial [Recovering/Resolving]
  - IIIrd nerve paralysis [Recovering/Resolving]
  - Encephalitis [Recovering/Resolving]
  - Listeriosis [Recovering/Resolving]
